FAERS Safety Report 4945293-7 (Version None)
Quarter: 2006Q1

REPORT INFORMATION
  Report Type: 
  Country: None (occurrence: None)
  Receive Date: 20060111
  Receipt Date: 20050829
  Transmission Date: 20060701
  Serious: Yes (Hospitalization)
  Sender: FDA-Public Use
  Company Number: A001-002-006623

PATIENT
  Age: 85 Year
  Sex: Male

DRUGS (4)
  1. ARICEPT [Suspect]
     Indication: CONFUSIONAL STATE
     Dosage: 10 MG, 1 IN 1 D, ORAL
     Route: 048
     Dates: start: 20050804, end: 20050818
  2. ARICEPT [Suspect]
     Indication: DEMENTIA
     Dosage: 10 MG, 1 IN 1 D, ORAL
     Route: 048
     Dates: start: 20050804, end: 20050818
  3. FOSAMAX [Concomitant]
  4. ASPIRIN [Concomitant]

REACTIONS (1)
  - ASTHENIA [None]
